FAERS Safety Report 10670562 (Version 2)
Quarter: 2015Q1

REPORT INFORMATION
  Report Type: Spontaneous
  Country: IT (occurrence: IT)
  Receive Date: 20141223
  Receipt Date: 20150303
  Transmission Date: 20150720
  Serious: Yes (Other)
  Sender: FDA-Public Use
  Company Number: PHHY2014IT165117

PATIENT
  Age: 50 Year
  Sex: Female

DRUGS (2)
  1. VOLTAREN [Suspect]
     Active Substance: DICLOFENAC SODIUM
     Indication: BACK PAIN
     Dosage: 75 MG, TOTALLY
     Route: 030
     Dates: start: 20141030, end: 20141030
  2. MUSCORIL [Interacting]
     Active Substance: THIOCOLCHICOSIDE
     Indication: BACK PAIN
     Dosage: 4 MG, TOTALLY
     Route: 030
     Dates: start: 20141030, end: 20141030

REACTIONS (4)
  - Face oedema [Recovered/Resolved]
  - Drug interaction [None]
  - Pharyngeal oedema [Recovered/Resolved]
  - Hypersensitivity [Recovered/Resolved]

NARRATIVE: CASE EVENT DATE: 20141031
